FAERS Safety Report 16193815 (Version 1)
Quarter: 2019Q2

REPORT INFORMATION
  Report Type: Spontaneous
  Country: US (occurrence: US)
  Receive Date: 20190413
  Receipt Date: 20190413
  Transmission Date: 20190711
  Serious: No
  Sender: FDA-Public Use
  Company Number: US-BIOGEN-2019BI00722915

PATIENT
  Sex: Female

DRUGS (1)
  1. TECFIDERA [Suspect]
     Active Substance: DIMETHYL FUMARATE
     Indication: MULTIPLE SCLEROSIS
     Route: 048
     Dates: start: 20180925

REACTIONS (5)
  - Arthropathy [Unknown]
  - Multiple sclerosis [Unknown]
  - Foot fracture [Unknown]
  - Osteoporosis [Unknown]
  - Fall [Recovered/Resolved]
